FAERS Safety Report 5716119-9 (Version None)
Quarter: 2008Q2

REPORT INFORMATION
  Report Type: 
  Country: None (occurrence: None)
  Receive Date: 20080423
  Receipt Date: 20080423
  Transmission Date: 20081010
  Serious: Yes (Other)
  Sender: FDA-Public Use
  Company Number: None

PATIENT
  Age: 67 Year
  Sex: Male
  Weight: 114.76 kg

DRUGS (1)
  1. LAMICTAL [Suspect]
     Indication: EPILEPSY
     Dosage: 25 MG  TWICE DAILY  PO
     Route: 048
     Dates: start: 20080412, end: 20080414

REACTIONS (2)
  - SLEEP TERROR [None]
  - SUICIDAL IDEATION [None]
